FAERS Safety Report 21166255 (Version 2)
Quarter: 2022Q3

REPORT INFORMATION
  Report Type: Spontaneous
  Country: DE (occurrence: None)
  Receive Date: 20220803
  Receipt Date: 20220826
  Transmission Date: 20221027
  Serious: Yes (Life-Threatening, Hospitalization, Other)
  Sender: FDA-Public Use
  Company Number: 2022A269896

PATIENT
  Age: 34 Year
  Sex: Female
  Weight: 150 kg

DRUGS (1)
  1. ESOMEPRAZOLE [Suspect]
     Active Substance: ESOMEPRAZOLE
     Indication: Bowel preparation
     Dosage: 20 MILLIGRAM, 1/DAY
     Route: 048
     Dates: start: 20220624

REACTIONS (5)
  - Anaphylactic shock [Recovered/Resolved]
  - Faeces discoloured [Recovered/Resolved]
  - Skin weeping [Recovered/Resolved]
  - Dry mouth [Recovered/Resolved]
  - Insomnia [Recovered/Resolved]
